FAERS Safety Report 25223820 (Version 2)
Quarter: 2025Q3

REPORT INFORMATION
  Report Type: Spontaneous
  Country: IN (occurrence: IN)
  Receive Date: 20250422
  Receipt Date: 20250829
  Transmission Date: 20251020
  Serious: Yes (Other)
  Sender: RANBAXY
  Company Number: IN-SUN PHARMACEUTICAL INDUSTRIES LTD-2025R1-504420

PATIENT
  Age: 70 Year
  Sex: Male

DRUGS (2)
  1. PHENYTOIN [Interacting]
     Active Substance: PHENYTOIN
     Indication: Epilepsy
     Route: 065
  2. CIMETIDINE [Interacting]
     Active Substance: CIMETIDINE
     Indication: Abdominal discomfort
     Route: 065

REACTIONS (4)
  - Toxicity to various agents [Recovering/Resolving]
  - Drug interaction [Recovering/Resolving]
  - Cerebellar ataxia [Recovering/Resolving]
  - Drug level increased [Recovering/Resolving]
